FAERS Safety Report 14987798 (Version 1)
Quarter: 2018Q2

REPORT INFORMATION
  Report Type: Spontaneous
  Country: US (occurrence: US)
  Receive Date: 20180518
  Receipt Date: 20180518
  Transmission Date: 20180711
  Serious: No
  Sender: FDA-Public Use
  Company Number: None

PATIENT
  Age: 37 Year
  Sex: Male
  Weight: 72 kg

DRUGS (1)
  1. ESCITALOPRAM (GENERIC) [Suspect]
     Active Substance: ESCITALOPRAM OXALATE
     Indication: ANXIETY DISORDER
     Dosage: ?          QUANTITY:1 TABLET(S);?
     Route: 048

REACTIONS (6)
  - Somnolence [None]
  - Sleep deficit [None]
  - Paraesthesia [None]
  - Visual impairment [None]
  - Disturbance in attention [None]
  - Memory impairment [None]

NARRATIVE: CASE EVENT DATE: 20170630
